FAERS Safety Report 14083208 (Version 1)
Quarter: 2017Q4

REPORT INFORMATION
  Report Type: Spontaneous
  Country: CN (occurrence: CN)
  Receive Date: 20171013
  Receipt Date: 20171013
  Transmission Date: 20180321
  Serious: Yes (Death)
  Sender: FDA-Public Use
  Company Number: CN-MYLANLABS-2017M1063829

PATIENT
  Age: 90 Year
  Sex: Male

DRUGS (5)
  1. ETOPOSIDE. [Suspect]
     Active Substance: ETOPOSIDE
     Indication: B-CELL LYMPHOMA STAGE III
     Dosage: 100MG/DAY FROM DAY 3 TO DAY 5
     Route: 065
  2. DOXORUBICIN [Suspect]
     Active Substance: DOXORUBICIN
     Indication: B-CELL LYMPHOMA STAGE III
     Dosage: 500 MG/M2 ON DAY 1
     Route: 065
  3. CYCLOPHOSPHAMIDE. [Suspect]
     Active Substance: CYCLOPHOSPHAMIDE
     Indication: B-CELL LYMPHOMA STAGE III
     Dosage: 750 MG/M2 ON DAY 1
     Route: 065
  4. VINCRISTINE [Suspect]
     Active Substance: VINCRISTINE
     Indication: B-CELL LYMPHOMA STAGE III
     Dosage: 1.4 MG/M2 ON DAY 1
     Route: 065
  5. PREDNISONE. [Suspect]
     Active Substance: PREDNISONE
     Indication: B-CELL LYMPHOMA STAGE III
     Dosage: 60 MG/M2 ON DAY 1 TO DAY 5
     Route: 065

REACTIONS (1)
  - Multiple organ dysfunction syndrome [Fatal]
